FAERS Safety Report 4601825-X (Version None)
Quarter: 2005Q1

REPORT INFORMATION
  Report Type: 
  Country: None (occurrence: None)
  Receive Date: 20050131
  Receipt Date: 20041116
  Transmission Date: 20050727
  Serious: Yes (Hospitalization)
  Sender: FDA-Public Use
  Company Number: 200417856US

PATIENT
  Age: 53 Year
  Sex: Female
  Weight: 86.4 kg

DRUGS (5)
  1. TELITHROMYCIN (KETEK) TABLETS [Suspect]
     Indication: CELLULITIS
     Dosage: 800 MG QD PO
     Route: 048
     Dates: start: 20040830, end: 20040908
  2. TELITHROMYCIN (KETEK) TABLETS [Suspect]
     Indication: CELLULITIS
     Dosage: 400 MG QD PO
     Route: 048
     Dates: start: 20040909, end: 20040928
  3. PREDNISONE [Concomitant]
  4. ZYRTEC [Concomitant]
  5. HYDROXYZINE HYDROCHLORIDE (ATARAX /CAN/) [Concomitant]

REACTIONS (8)
  - ABDOMINAL PAIN [None]
  - DIZZINESS [None]
  - ELECTROLYTE IMBALANCE [None]
  - HYPERSENSITIVITY [None]
  - JAUNDICE [None]
  - LIVER FUNCTION TEST ABNORMAL [None]
  - NAUSEA [None]
  - PYREXIA [None]
